FAERS Safety Report 5070374-X (Version None)
Quarter: 2006Q3

REPORT INFORMATION
  Report Type: 
  Country: None (occurrence: None)
  Receive Date: 20060731
  Receipt Date: 20060718
  Transmission Date: 20061208
  Serious: Yes (Death)
  Sender: FDA-Public Use
  Company Number: 2006JP002277

PATIENT
  Sex: 0

DRUGS (2)
  1. PROGRAF [Suspect]
     Indication: LIVER TRANSPLANT
  2. PREDNISOLONE [Concomitant]

REACTIONS (1)
  - PNEUMONIA FUNGAL [None]
